FAERS Safety Report 7782989-6 (Version None)
Quarter: 2011Q3

REPORT INFORMATION
  Report Type: 
  Country: None (occurrence: None)
  Receive Date: 20110927
  Receipt Date: 20110927
  Transmission Date: 20111222
  Serious: Yes (Hospitalization)
  Sender: FDA-Public Use
  Company Number: None

PATIENT
  Age: 69 Year
  Sex: Male
  Weight: 133.6 kg

DRUGS (1)
  1. WARFARIN SODIUM [Suspect]
     Dates: start: 20110716

REACTIONS (1)
  - HAEMOGLOBIN DECREASED [None]
